FAERS Safety Report 8511726-2 (Version None)
Quarter: 2012Q3

REPORT INFORMATION
  Report Type: 
  Country: None (occurrence: None)
  Receive Date: 20120716
  Receipt Date: 20120709
  Transmission Date: 20120928
  Serious: No
  Sender: FDA-Public Use
  Company Number: US-BAYER-2012-069775

PATIENT
  Age: 67 Year
  Sex: Female
  Weight: 69 kg

DRUGS (11)
  1. ATENOLOL [Concomitant]
  2. ALEVE (CAPLET) [Suspect]
     Indication: JOINT STABILISATION
  3. ALEVE (CAPLET) [Suspect]
     Indication: ANTIINFLAMMATORY THERAPY
     Dosage: 2 DF, QD
     Route: 048
     Dates: start: 20070101
  4. ASPIRIN [Suspect]
     Indication: INSOMNIA
  5. TRIAMTERENE AND HYDROCHLOROTHIAZIDE [Concomitant]
  6. MULTIVITAMIN [Concomitant]
  7. ASPIRIN [Suspect]
     Indication: RELAXATION THERAPY
     Dosage: 2 DF, PRN
     Route: 048
     Dates: start: 20110101
  8. ASPIRIN [Concomitant]
     Indication: ISCHAEMIC HEART DISEASE PROPHYLAXIS
  9. LOVASTATIN [Concomitant]
  10. CALCIUM [Concomitant]
  11. LISINOPRIL [Concomitant]

REACTIONS (1)
  - INSOMNIA [None]
